FAERS Safety Report 10352936 (Version 1)
Quarter: 2014Q3

REPORT INFORMATION
  Report Type: Spontaneous
  Country: US (occurrence: US)
  Receive Date: 20140730
  Receipt Date: 20140730
  Transmission Date: 20150326
  Serious: No
  Sender: FDA-Public Use
  Company Number: US-ABBVIE-14P-163-1191105-00

PATIENT
  Sex: Female
  Weight: 74.91 kg

DRUGS (21)
  1. ACTIVELLA [Concomitant]
     Active Substance: ESTRADIOL\NORETHINDRONE ACETATE
     Indication: BLOOD OESTROGEN
     Dosage: EVERY MORNING
  2. MULTIVITAMIN [Concomitant]
     Active Substance: VITAMINS
     Indication: VITAMIN SUPPLEMENTATION
  3. SYNTHROID [Suspect]
     Active Substance: LEVOTHYROXINE SODIUM
     Indication: HYPOTHYROIDISM
     Dates: start: 199308, end: 2013
  4. LITHIUM [Suspect]
     Active Substance: LITHIUM CARBONATE
     Indication: POST-TRAUMATIC STRESS DISORDER
     Dosage: EVERY MORNING
  5. FLONASE [Concomitant]
     Active Substance: FLUTICASONE PROPIONATE
     Indication: SINUS DISORDER
  6. OMEGA 3 [Concomitant]
     Active Substance: OMEGA-3 FATTY ACIDS
     Indication: PROPHYLAXIS
  7. GINGKO BILOBA EXTR [Concomitant]
     Indication: PROPHYLAXIS
  8. CLARITIN [Concomitant]
     Active Substance: LORATADINE
     Indication: HYPERSENSITIVITY
  9. HYDROCODONE/ACETAMINOPHEN [Concomitant]
     Active Substance: ACETAMINOPHEN\HYDROCODONE
     Indication: BACK PAIN
  10. LORAZEPAM. [Concomitant]
     Active Substance: LORAZEPAM
     Indication: ANXIETY
  11. NAPROSYN [Concomitant]
     Active Substance: NAPROXEN
     Indication: ARTHRITIS
  12. VITAMIN C [Concomitant]
     Active Substance: ASCORBIC ACID
     Indication: VITAMIN SUPPLEMENTATION
  13. OXYBUTYNIN [Concomitant]
     Active Substance: OXYBUTYNIN
     Indication: HYPERTONIC BLADDER
  14. RESTASIS [Concomitant]
     Active Substance: CYCLOSPORINE
     Indication: DRY EYE
  15. TOPIRAMATE. [Concomitant]
     Active Substance: TOPIRAMATE
     Indication: MIGRAINE
  16. UNKNOWN STEROID SHOT [Concomitant]
     Indication: PAIN IN EXTREMITY
     Dosage: CERVICAL SPINE
     Route: 050
  17. SYNTHROID [Suspect]
     Active Substance: LEVOTHYROXINE SODIUM
     Dosage: UNABLE TO CLARIFY COMBINATION
     Dates: start: 2013
  18. SYNTHROID [Suspect]
     Active Substance: LEVOTHYROXINE SODIUM
     Dosage: UNABLE TO CLARIFY COMBINATION
  19. BENZOTROPINE [Suspect]
     Active Substance: BENZTROPINE
     Indication: TREMOR
     Dosage: EVERY MORNING
  20. HYDROCODONE/ACETAMINOPHEN [Concomitant]
     Active Substance: ACETAMINOPHEN\HYDROCODONE
     Indication: PAIN IN EXTREMITY
  21. COLLAGEN [Concomitant]
     Active Substance: COLLAGEN
     Indication: PROPHYLAXIS

REACTIONS (5)
  - Blood thyroid stimulating hormone increased [Recovered/Resolved]
  - Unevaluable event [Recovering/Resolving]
  - Blood thyroid stimulating hormone decreased [Unknown]
  - Tremor [Not Recovered/Not Resolved]
  - Multiple drug therapy [Recovering/Resolving]

NARRATIVE: CASE EVENT DATE: 1993
